FAERS Safety Report 18966538 (Version 1)
Quarter: 2021Q1

REPORT INFORMATION
  Report Type: Spontaneous
  Country: US (occurrence: US)
  Receive Date: 20210304
  Receipt Date: 20210304
  Transmission Date: 20210420
  Serious: No
  Sender: FDA-Public Use
  Company Number: US-AUROBINDO-AUR-APL-2020-061346

PATIENT
  Age: 85 Year
  Sex: Female
  Weight: 56.68 kg

DRUGS (2)
  1. DIPHENHYDRAMINE HYDROCHLORIDE+IBUPROFEN CAPSULES USP 25MG/200MG [Suspect]
     Active Substance: DIPHENHYDRAMINE HYDROCHLORIDE\IBUPROFEN
     Indication: PAIN MANAGEMENT
     Dosage: 1 DOSAGE FORM, BEFORE GOING TO SLEEP
     Route: 048
     Dates: start: 20201207
  2. DIPHENHYDRAMINE HYDROCHLORIDE+IBUPROFEN CAPSULES USP 25MG/200MG [Suspect]
     Active Substance: DIPHENHYDRAMINE HYDROCHLORIDE\IBUPROFEN
     Indication: SOMNOLENCE
     Dosage: 2 DOSAGE FORM BEFORE BED TIME
     Route: 048
     Dates: start: 20201210, end: 20201210

REACTIONS (4)
  - Hypoaesthesia [Recovered/Resolved]
  - Pain in extremity [Recovered/Resolved]
  - Pseudoparalysis [Recovered/Resolved]
  - Product substitution issue [Unknown]

NARRATIVE: CASE EVENT DATE: 20201207
